FAERS Safety Report 8623011 (Version 2)
Quarter: 2012Q4

REPORT INFORMATION
  Report Type: 
  Country: FR (occurrence: FR)
  Receive Date: 20120619
  Receipt Date: 20121012
  Transmission Date: 20130627
  Serious: Yes (Other)
  Sender: FDA-Public Use
  Company Number: FR-TEVA-342899ISR

PATIENT
  Age: 81 None
  Sex: Male

DRUGS (10)
  1. AZILECT [Suspect]
     Indication: PARKINSON^S DISEASE
     Dosage: 1 Milligram Daily;
     Route: 048
     Dates: end: 20120402
  2. SINEMET [Suspect]
     Indication: PARKINSON^S DISEASE
     Dosage: 100 mg/ 25 mg
     Route: 048
     Dates: start: 2001
  3. SINEMET [Suspect]
     Dosage: 200 mg/ 50 mg, daily: 800 mg/ 200 mg
     Route: 048
     Dates: start: 2001
  4. GUTRON [Concomitant]
     Dates: end: 20120402
  5. CYMBALTA [Concomitant]
     Dates: end: 20120402
  6. IKARAN [Concomitant]
     Dates: end: 20120402
  7. LYRICA [Concomitant]
     Dates: end: 20120402
  8. OMEPRAZOLE [Concomitant]
     Dates: end: 20120402
  9. MOVICOL [Concomitant]
  10. PARACETAMOL [Concomitant]

REACTIONS (1)
  - Pseudophaeochromocytoma [Recovered/Resolved]
